FAERS Safety Report 14576277 (Version 1)
Quarter: 2018Q1

REPORT INFORMATION
  Report Type: Report from Study
  Country: US (occurrence: US)
  Receive Date: 20180227
  Receipt Date: 20180227
  Transmission Date: 20180509
  Serious: No
  Sender: FDA-Public Use
  Company Number: PHEH2018US007232

PATIENT
  Sex: Male

DRUGS (1)
  1. COSENTYX [Suspect]
     Active Substance: SECUKINUMAB
     Indication: PSORIASIS
     Dosage: 350 MG, QMO
     Route: 058
     Dates: start: 20170417

REACTIONS (2)
  - White blood cell count decreased [Recovering/Resolving]
  - Prescribed overdose [Unknown]
